FAERS Safety Report 15068223 (Version 2)
Quarter: 2019Q4

REPORT INFORMATION
  Report Type: Spontaneous
  Country: FR (occurrence: FR)
  Receive Date: 20180626
  Receipt Date: 20191127
  Transmission Date: 20200122
  Serious: Yes (Life-Threatening)
  Sender: FDA-Public Use
  Company Number: FR-MYLANLABS-2018M1044456

PATIENT
  Age: 51 Year
  Sex: Female

DRUGS (6)
  1. KETAMINE [Concomitant]
     Active Substance: KETAMINE
     Indication: ANAESTHESIA
     Dosage: NON RENSEIGN?E
     Route: 042
     Dates: start: 20180316, end: 20180316
  2. CEFAZOLIN [Suspect]
     Active Substance: CEFAZOLIN
     Indication: ANTIBIOTIC THERAPY
     Dosage: NON RENSEIGN?E
     Route: 042
     Dates: start: 20180316, end: 20180316
  3. SUFENTANIL [Concomitant]
     Active Substance: SUFENTANIL
     Indication: ANAESTHESIA
     Dosage: NON RENSEIGN?E
     Route: 042
     Dates: start: 20180316, end: 20180316
  4. DEXAMETHASONE. [Concomitant]
     Active Substance: DEXAMETHASONE
     Indication: HYPERSENSITIVITY
     Dosage: NON RENSEIGN?E
     Route: 042
     Dates: start: 20180316, end: 20180316
  5. PROPOFOL. [Concomitant]
     Active Substance: PROPOFOL
     Indication: ANAESTHESIA
     Dosage: NON RENSEIGN?E
     Route: 042
     Dates: start: 20180316, end: 20180316
  6. ATRACURIUM [Concomitant]
     Active Substance: ATRACURIUM
     Indication: ANAESTHESIA
     Dosage: NON RENSEIGN?E
     Route: 042
     Dates: start: 20180316, end: 20180316

REACTIONS (3)
  - Oedema [Recovered/Resolved]
  - Anaphylactic shock [Recovered/Resolved]
  - Hypotension [Recovered/Resolved]

NARRATIVE: CASE EVENT DATE: 20180316
